FAERS Safety Report 4592475-2 (Version None)
Quarter: 2005Q1

REPORT INFORMATION
  Report Type: 
  Country: None (occurrence: None)
  Receive Date: 20050222
  Receipt Date: 20050211
  Transmission Date: 20050727
  Serious: Yes (Hospitalization, Other)
  Sender: FDA-Public Use
  Company Number: 2005029206

PATIENT
  Age: 75 Year
  Sex: Male

DRUGS (1)
  1. PHENYTOIN SODIUM [Suspect]
     Indication: EPILEPSY
     Dosage: 330 MG (1 IN 1 D), ORAL
     Route: 048
     Dates: start: 19780101

REACTIONS (2)
  - GRAND MAL CONVULSION [None]
  - PHARMACEUTICAL PRODUCT COMPLAINT [None]
